FAERS Safety Report 5508631-2 (Version None)
Quarter: 2007Q4

REPORT INFORMATION
  Report Type: 
  Country: None (occurrence: None)
  Receive Date: 20071107
  Receipt Date: 20071031
  Transmission Date: 20080405
  Serious: Yes (Other)
  Sender: FDA-Public Use
  Company Number: CZ-BAYER-200716569GDS

PATIENT

DRUGS (4)
  1. CIPROFLOXACIN [Suspect]
     Indication: ANTIBIOTIC PROPHYLAXIS
     Route: 042
  2. TACROLIMUS [Concomitant]
     Indication: IMMUNOSUPPRESSION
     Route: 065
  3. MYCOPHENOLATE MOFETIL [Concomitant]
     Indication: IMMUNOSUPPRESSION
     Route: 065
  4. PREDNISONE [Concomitant]
     Indication: IMMUNOSUPPRESSION
     Route: 065

REACTIONS (5)
  - DIARRHOEA [None]
  - PNEUMONIA [None]
  - PYELONEPHRITIS [None]
  - URINARY TRACT INFECTION [None]
  - WOUND INFECTION [None]
